FAERS Safety Report 6367125-5 (Version None)
Quarter: 2009Q3

REPORT INFORMATION
  Report Type: 
  Country: None (occurrence: None)
  Receive Date: 20090921
  Receipt Date: 20090713
  Transmission Date: 20100115
  Serious: No
  Sender: FDA-Public Use
  Company Number: US-BAYER-200926536NA

PATIENT
  Sex: Female

DRUGS (1)
  1. MIRENA [Suspect]
     Indication: DRUG USE FOR UNKNOWN INDICATION
     Dosage: CONTINUOUS
     Route: 015
     Dates: start: 20080808

REACTIONS (9)
  - ABDOMINAL DISTENSION [None]
  - ALOPECIA [None]
  - AMENORRHOEA [None]
  - ARTHRALGIA [None]
  - DIZZINESS [None]
  - MEMORY IMPAIRMENT [None]
  - MIGRAINE [None]
  - PELVIC PAIN [None]
  - URINARY TRACT INFECTION [None]
